FAERS Safety Report 5984489-2 (Version None)
Quarter: 2008Q4

REPORT INFORMATION
  Report Type: 
  Country: None (occurrence: None)
  Receive Date: 20081208
  Receipt Date: 20080527
  Transmission Date: 20090506
  Serious: Yes (Other)
  Sender: FDA-Public Use
  Company Number: US-AMGEN-QUU282789

PATIENT
  Sex: Male

DRUGS (1)
  1. ENBREL [Suspect]
     Indication: PSORIASIS
     Dates: start: 20041001

REACTIONS (5)
  - CHOLELITHIASIS [None]
  - EXPIRED DRUG ADMINISTERED [None]
  - GASTRIC CANCER [None]
  - INCORRECT DOSE ADMINISTERED [None]
  - INJECTION SITE PRURITUS [None]
